FAERS Safety Report 25186037 (Version 2)
Quarter: 2025Q2

REPORT INFORMATION
  Report Type: Spontaneous
  Country: FR (occurrence: None)
  Receive Date: 20250410
  Receipt Date: 20250501
  Transmission Date: 20250716
  Serious: Yes (Death, Hospitalization)
  Sender: INCYTE
  Company Number: FR-002147023-NVSC2025FR058453

PATIENT
  Age: 15 Year

DRUGS (1)
  1. RUXOLITINIB [Suspect]
     Active Substance: RUXOLITINIB
     Indication: Product used for unknown indication
     Route: 065

REACTIONS (1)
  - Pathology test [Fatal]
